FAERS Safety Report 25460974 (Version 1)
Quarter: 2025Q2

REPORT INFORMATION
  Report Type: Spontaneous
  Country: US (occurrence: None)
  Receive Date: 20250620
  Receipt Date: 20250620
  Transmission Date: 20250717
  Serious: Yes (Hospitalization)
  Sender: FDA-CTU
  Company Number: None

PATIENT
  Age: 74 Year
  Sex: Female

DRUGS (8)
  1. CYCLOPHOSPHAMIDE [Suspect]
     Active Substance: CYCLOPHOSPHAMIDE
     Dosage: FREQUENCY : DAILY;?
     Route: 048
     Dates: start: 20240619
  2. ACETAMINOPHEN [Concomitant]
     Active Substance: ACETAMINOPHEN
  3. CYCLOPHOSPH [Concomitant]
  4. DEFERASIROX [Concomitant]
     Active Substance: DEFERASIROX
  5. FOLIC ACID [Concomitant]
     Active Substance: FOLIC ACID
  6. LINZESS [Concomitant]
     Active Substance: LINACLOTIDE
  7. ONDANSETRON [Concomitant]
     Active Substance: ONDANSETRON
  8. PANTOPRAZOLE [Concomitant]
     Active Substance: PANTOPRAZOLE

REACTIONS (1)
  - Hypotension [None]

NARRATIVE: CASE EVENT DATE: 20250520
